FAERS Safety Report 8474776-0 (Version None)
Quarter: 2012Q2

REPORT INFORMATION
  Report Type: 
  Country: None (occurrence: None)
  Receive Date: 20120628
  Receipt Date: 20120625
  Transmission Date: 20120825
  Serious: No
  Sender: FDA-Public Use
  Company Number: US-PFIZER INC-2012153030

PATIENT
  Sex: Male
  Weight: 68.027 kg

DRUGS (4)
  1. MORPHINE [Concomitant]
     Dosage: 60 MG, 3X/DAY
  2. NEURONTIN [Suspect]
     Indication: SPINAL COLUMN INJURY
     Dosage: UNK, 2X/DAY
     Route: 048
     Dates: start: 20020501
  3. OXYCODONE [Concomitant]
     Dosage: 30 MG, AS NEEDED
  4. NEURONTIN [Suspect]
     Indication: FIBROMYALGIA
     Dosage: UNK
     Route: 048
     Dates: end: 20090201

REACTIONS (2)
  - GASTRIC DISORDER [None]
  - DRUG INEFFECTIVE [None]
